FAERS Safety Report 14788268 (Version 1)
Quarter: 2018Q2

REPORT INFORMATION
  Report Type: Report from Study
  Country: US (occurrence: US)
  Receive Date: 20180423
  Receipt Date: 20180423
  Transmission Date: 20180711
  Serious: Yes (Disabling)
  Sender: FDA-Public Use
  Company Number: US-ROCHE-1921201

PATIENT
  Sex: Male

DRUGS (1)
  1. CELLCEPT [Suspect]
     Active Substance: MYCOPHENOLATE MOFETIL\MYCOPHENOLATE MOFETIL HYDROCHLORIDE
     Indication: RENAL TRANSPLANT
     Route: 048

REACTIONS (6)
  - Gastric disorder [Unknown]
  - Asthenia [Unknown]
  - Diarrhoea [Unknown]
  - Flatulence [Unknown]
  - Muscle spasms [Unknown]
  - Gastrointestinal disorder [Unknown]
